FAERS Safety Report 20033641 (Version 5)
Quarter: 2022Q1

REPORT INFORMATION
  Report Type: Spontaneous
  Country: US (occurrence: US)
  Receive Date: 20211104
  Receipt Date: 20220314
  Transmission Date: 20220424
  Serious: Yes (Hospitalization, Other)
  Sender: FDA-Public Use
  Company Number: US-AMGEN-USASP2021168824

PATIENT
  Age: 78 Year
  Sex: Female

DRUGS (2)
  1. REPATHA [Suspect]
     Active Substance: EVOLOCUMAB
     Indication: Blood cholesterol increased
     Dosage: 420 MILLIGRAM, QMO
     Route: 065
     Dates: start: 2020
  2. REPATHA [Suspect]
     Active Substance: EVOLOCUMAB
     Dosage: 420 MILLIGRAM, QMO
     Route: 065

REACTIONS (10)
  - Abscess drainage [Recovered/Resolved]
  - Fournier^s gangrene [Unknown]
  - COVID-19 [Unknown]
  - Septic shock [Unknown]
  - Myocardial infarction [Not Recovered/Not Resolved]
  - Osteoarthritis [Not Recovered/Not Resolved]
  - Renal disorder [Unknown]
  - Abdominal pain upper [Unknown]
  - Hypoacusis [Unknown]
  - Device use error [Unknown]

NARRATIVE: CASE EVENT DATE: 20210913
